FAERS Safety Report 6373166-4 (Version None)
Quarter: 2009Q3

REPORT INFORMATION
  Report Type: 
  Country: None (occurrence: None)
  Receive Date: 20090924
  Receipt Date: 20090127
  Transmission Date: 20100115
  Serious: No
  Sender: FDA-Public Use
  Company Number: US-ASTRAZENECA-2009UW02358

PATIENT
  Age: 566 Month
  Sex: Female

DRUGS (1)
  1. SEROQUEL [Suspect]
     Indication: DEPRESSION
     Dosage: 100-300MG / DAY
     Route: 048
     Dates: start: 19990401, end: 20050401

REACTIONS (1)
  - DIABETES MELLITUS [None]
